FAERS Safety Report 7408857-7 (Version None)
Quarter: 2011Q2

REPORT INFORMATION
  Report Type: 
  Country: None (occurrence: None)
  Receive Date: 20110412
  Receipt Date: 20110330
  Transmission Date: 20111010
  Serious: Yes (Death)
  Sender: FDA-Public Use
  Company Number: US-ACTELION-A-US2011-46633

PATIENT

DRUGS (4)
  1. TRACLEER [Suspect]
     Indication: PULMONARY ARTERIAL HYPERTENSION
     Dosage: 62.5 MG, BID
     Route: 048
     Dates: start: 20080311, end: 20110316
  2. COUMADIN [Concomitant]
  3. REVATIO [Concomitant]
  4. ASPIRIN [Concomitant]

REACTIONS (1)
  - CARDIAC ARREST [None]
